FAERS Safety Report 6283081-2 (Version None)
Quarter: 2009Q3

REPORT INFORMATION
  Report Type: 
  Country: None (occurrence: None)
  Receive Date: 20090724
  Receipt Date: 20090715
  Transmission Date: 20100115
  Serious: Yes (Death)
  Sender: FDA-Public Use
  Company Number: A0725421A

PATIENT
  Age: 61 Year
  Sex: Female
  Weight: 105.9 kg

DRUGS (14)
  1. AVANDIA [Suspect]
     Dosage: 4MG PER DAY
     Route: 048
     Dates: start: 20050401, end: 20060109
  2. HUMALOG [Concomitant]
     Dates: start: 20010101
  3. GLUCOPHAGE [Concomitant]
     Dates: start: 20010101
  4. ADVAIR HFA [Concomitant]
  5. ATROVENT [Concomitant]
  6. SINGULAIR [Concomitant]
  7. ENALAPRIL MALEATE [Concomitant]
  8. LASIX [Concomitant]
  9. FLEXERIL [Concomitant]
  10. PAXIL [Concomitant]
  11. BUSPAR [Concomitant]
  12. XANAX [Concomitant]
  13. ELAVIL [Concomitant]
  14. LIPITOR [Concomitant]

REACTIONS (2)
  - CARDIAC FAILURE CONGESTIVE [None]
  - MYOCARDIAL INFARCTION [None]
